FAERS Safety Report 22614078 (Version 1)
Quarter: 2023Q2

REPORT INFORMATION
  Report Type: Report from Study
  Country: US (occurrence: US)
  Receive Date: 20230619
  Receipt Date: 20230619
  Transmission Date: 20230722
  Serious: Yes (Other)
  Sender: FDA-Public Use
  Company Number: US-ABBVIE-5293008

PATIENT
  Age: 48 Year
  Sex: Female

DRUGS (1)
  1. RESTASIS [Suspect]
     Active Substance: CYCLOSPORINE
     Indication: Dry eye
     Dosage: TIME INTERVAL: 0.33333333 DAYS: DOSAGE: 0.5 MG/ML
     Route: 047
     Dates: start: 20230401, end: 20230613

REACTIONS (3)
  - Spinal operation [Recovering/Resolving]
  - Expired product administered [Unknown]
  - Therapeutic product effect decreased [Recovered/Resolved]

NARRATIVE: CASE EVENT DATE: 20230401
